FAERS Safety Report 20376730 (Version 2)
Quarter: 2022Q1

REPORT INFORMATION
  Report Type: Spontaneous
  Country: US (occurrence: US)
  Receive Date: 20220125
  Receipt Date: 20220208
  Transmission Date: 20220423
  Serious: Yes (Other)
  Sender: FDA-Public Use
  Company Number: US-SUNOVION-2022SUN000226

PATIENT
  Age: 57 Year
  Sex: Female

DRUGS (1)
  1. LONHALA MAGNAIR [Suspect]
     Active Substance: GLYCOPYRROLATE
     Dosage: 25 ?G
     Route: 055

REACTIONS (6)
  - Pulmonary congestion [Unknown]
  - Dyspnoea [Unknown]
  - Device failure [Unknown]
  - Device issue [Unknown]
  - Device power source issue [Unknown]
  - Product dose omission issue [Unknown]
